FAERS Safety Report 7012644-1 (Version None)
Quarter: 2010Q3

REPORT INFORMATION
  Report Type: 
  Country: None (occurrence: None)
  Receive Date: 20100924
  Receipt Date: 20100915
  Transmission Date: 20110219
  Serious: Yes (Life-Threatening)
  Sender: FDA-Public Use
  Company Number: JP-ROCHE-718745

PATIENT
  Sex: Female
  Weight: 34 kg

DRUGS (14)
  1. XELODA [Suspect]
     Indication: RECTAL CANCER METASTATIC
     Route: 048
     Dates: start: 20100608
  2. AVASTIN [Suspect]
     Indication: RECTAL CANCER METASTATIC
     Route: 041
     Dates: start: 20100608, end: 20100720
  3. ELPLAT [Suspect]
     Indication: RECTAL CANCER METASTATIC
     Route: 041
     Dates: start: 20100608
  4. VOLTAREN [Concomitant]
     Dosage: DRUG: DICLOFENAC SODIUM
     Route: 048
     Dates: start: 20100506, end: 20100723
  5. LOXOPROFEN SODIUM [Concomitant]
     Dosage: DRUG: THREENOFEN
     Route: 048
     Dates: start: 20100720, end: 20100723
  6. DECADRON [Concomitant]
     Dosage: DOSE FORM: UNCERTAINTY
     Route: 065
     Dates: start: 20100608, end: 20100720
  7. NORVASC [Concomitant]
     Dosage: DRUG: NORVASC OD(AMLODIPINE BESILATE)
     Route: 048
     Dates: start: 20081001
  8. GANATON [Concomitant]
     Dosage: DRUG: GANATON(ITOPRIDE HYDROCHLORIDE)
     Route: 048
     Dates: start: 20081001
  9. MAGLAX [Concomitant]
     Route: 048
     Dates: start: 20081001
  10. METHYCOBAL [Concomitant]
     Route: 048
     Dates: start: 20100608, end: 20100722
  11. PYDOXAL [Concomitant]
     Route: 048
     Dates: start: 20100608, end: 20100722
  12. GOSHAJINKIGAN [Concomitant]
     Dosage: DRUG: (GOSHA-JINKI-GAN); DOSE FORM: POWDERED MEDICINE
     Route: 048
     Dates: start: 20100629, end: 20100722
  13. URSO 250 [Concomitant]
     Route: 048
     Dates: start: 20100629, end: 20100722
  14. OXYCONTIN [Concomitant]
     Dosage: DRUG: OXYCONTIN(OXYCODONE HYDROCHLORIDE); DOSE FORM: SUSTAINED-RELEASE TABLET
     Route: 048
     Dates: start: 20100629, end: 20100722

REACTIONS (3)
  - NAUSEA [None]
  - PALMAR-PLANTAR ERYTHRODYSAESTHESIA SYNDROME [None]
  - RECTAL PERFORATION [None]
